FAERS Safety Report 21909898 (Version 1)
Quarter: 2023Q1

REPORT INFORMATION
  Report Type: Spontaneous
  Country: CA (occurrence: CA)
  Receive Date: 20230125
  Receipt Date: 20230125
  Transmission Date: 20230418
  Serious: Yes (Other)
  Sender: FDA-Public Use
  Company Number: CA-PFIZER INC-202201307503

PATIENT
  Age: 21 Year
  Sex: Male

DRUGS (5)
  1. ABRILADA [Suspect]
     Active Substance: ADALIMUMAB-AFZB
     Indication: Crohn^s disease
     Dosage: 1 DF, WEEK 0: 160MG, WEEK 2: 80MG, THEN 40MG EVERY OTHER WEEK
     Route: 058
     Dates: start: 20221115
  2. ASPIRIN [Concomitant]
     Active Substance: ASPIRIN
     Dosage: UNK
  3. FOLIC ACID [Concomitant]
     Active Substance: FOLIC ACID
     Dosage: UNK
  4. METHOTREXATE [Concomitant]
     Active Substance: METHOTREXATE
     Indication: Arthralgia
     Dosage: 15 MG, FREQUENCY: UNKNOWN. STOPPED DUE TO NAUSEA
     Route: 048
  5. METHOTREXATE [Concomitant]
     Active Substance: METHOTREXATE
     Dosage: 15 MG, FREQUENCY:  UNKNOWN. RESTARTED
     Route: 048

REACTIONS (5)
  - Ankle fracture [Unknown]
  - Foot fracture [Unknown]
  - Injection site erythema [Recovered/Resolved]
  - Injection site swelling [Recovered/Resolved]
  - Accident at work [Unknown]

NARRATIVE: CASE EVENT DATE: 20221115
